FAERS Safety Report 9467844 (Version 1)
Quarter: 2013Q3

REPORT INFORMATION
  Report Type: Report from Study
  Country: BR (occurrence: BR)
  Receive Date: 20130821
  Receipt Date: 20130821
  Transmission Date: 20140515
  Serious: Yes (Hospitalization, Other)
  Sender: FDA-Public Use
  Company Number: BR-ROCHE-1262323

PATIENT
  Age: 41 Year
  Sex: Female
  Weight: 87 kg

DRUGS (7)
  1. XOLAIR [Suspect]
     Indication: ASTHMA
     Dosage: 1 AMPULE EVERY 28 DAY AND LAST DOSE WAS TAKEN ON 10 JUL 2013
     Route: 065
     Dates: start: 2009
  2. XOLAIR [Suspect]
     Route: 065
     Dates: start: 20130710
  3. INFLUENZA VIRUS VACCINE, MONOVALENT [Suspect]
     Indication: IMMUNISATION
     Route: 065
  4. CORTISONE [Suspect]
     Indication: PRODUCT USED FOR UNKNOWN INDICATION
     Route: 065
  5. AEROLIN [Concomitant]
  6. SERETIDE DISKUS [Concomitant]
  7. SPIRIVA [Concomitant]

REACTIONS (7)
  - Abortion [Unknown]
  - Cardiomegaly [Recovering/Resolving]
  - Influenza [Recovering/Resolving]
  - Chest pain [Recovering/Resolving]
  - Overweight [Recovering/Resolving]
  - Exposure during pregnancy [Unknown]
  - Oedema [Recovering/Resolving]
